FAERS Safety Report 10655572 (Version 1)
Quarter: 2014Q4

REPORT INFORMATION
  Report Type: Spontaneous
  Country: US (occurrence: None)
  Receive Date: 20141215
  Receipt Date: 20141215
  Transmission Date: 20150529
  Serious: No
  Sender: FDA-Public Use
  Company Number: None

PATIENT
  Age: 52 Year
  Sex: Male
  Weight: 92.99 kg

DRUGS (2)
  1. BETAPACE [Suspect]
     Active Substance: SOTALOL HYDROCHLORIDE
     Indication: ARRHYTHMIA
     Route: 048
  2. NORCO [Suspect]
     Active Substance: ACETAMINOPHEN\HYDROCODONE BITARTRATE
     Indication: PROCEDURAL PAIN
     Route: 048
     Dates: start: 20141114, end: 20141115

REACTIONS (7)
  - Unresponsive to stimuli [None]
  - Hyperhidrosis [None]
  - Nausea [None]
  - Vasodilatation [None]
  - Dizziness [None]
  - Heart rate decreased [None]
  - Drug interaction [None]

NARRATIVE: CASE EVENT DATE: 20141115
